FAERS Safety Report 9162026 (Version 1)
Quarter: 2013Q1

REPORT INFORMATION
  Report Type: Report from Study
  Country: CA (occurrence: CA)
  Receive Date: 20130314
  Receipt Date: 20130314
  Transmission Date: 20140127
  Serious: Yes (Other)
  Sender: FDA-Public Use
  Company Number: CA-JNJFOC-20130301414

PATIENT
  Sex: Male
  Weight: 95.26 kg

DRUGS (2)
  1. SIMPONI [Suspect]
     Indication: PSORIATIC ARTHROPATHY
     Dates: start: 2011, end: 2011
  2. SERTRALINE [Concomitant]

REACTIONS (5)
  - Pain in extremity [Unknown]
  - Activities of daily living impaired [Unknown]
  - Hypokinesia [Unknown]
  - Abasia [Unknown]
  - Drug ineffective [Unknown]
